FAERS Safety Report 16766136 (Version 1)
Quarter: 2019Q4

REPORT INFORMATION
  Report Type: Spontaneous
  Country: US (occurrence: US)
  Receive Date: 20190902
  Receipt Date: 20190902
  Transmission Date: 20200122
  Serious: No
  Sender: FDA-Public Use
  Company Number: None

PATIENT
  Age: 55 Year
  Sex: Female
  Weight: 59.87 kg

DRUGS (1)
  1. XHANCE [Suspect]
     Active Substance: FLUTICASONE PROPIONATE

REACTIONS (4)
  - Skin laceration [None]
  - Product container issue [None]
  - Device breakage [None]
  - Injury associated with device [None]

NARRATIVE: CASE EVENT DATE: 20190901
